FAERS Safety Report 25527113 (Version 1)
Quarter: 2025Q3

REPORT INFORMATION
  Report Type: Spontaneous
  Country: EU (occurrence: EU)
  Receive Date: 20250708
  Receipt Date: 20250708
  Transmission Date: 20251021
  Serious: Yes (Hospitalization)
  Sender: ACCORD
  Company Number: None

PATIENT
  Age: 85 Year
  Sex: Female
  Weight: 61 kg

DRUGS (9)
  1. ARIPIPRAZOLE [Suspect]
     Active Substance: ARIPIPRAZOLE
     Indication: Dementia
     Dates: end: 20250319
  2. CYAMEMAZINE [Suspect]
     Active Substance: CYAMEMAZINE
     Indication: Dementia
     Dosage: STRENGTH: 25 MG, SCORED FILM-COATED TABLET
     Dates: end: 20250319
  3. ASPIRIN [Concomitant]
     Active Substance: ASPIRIN
  4. FLUOXETINE [Concomitant]
     Active Substance: FLUOXETINE HYDROCHLORIDE
  5. METFORMIN HYDROCHLORIDE [Concomitant]
     Active Substance: METFORMIN HYDROCHLORIDE
     Dosage: 500 MG MORNING AND NOON
  6. OXAZEPAM [Concomitant]
     Active Substance: OXAZEPAM
     Dosage: STRENGTH: 10 MG
  7. XALATAN [Concomitant]
     Active Substance: LATANOPROST
     Dosage: STRENGTH: 0.005 PERCENT EYE DROPS, SOLUTION
  8. GLYCOPYRROLATE\INDACATEROL MALEATE [Concomitant]
     Active Substance: GLYCOPYRROLATE\INDACATEROL MALEATE
     Dosage: 85 MCG/43 MCG, INHALATION POWDER IN CAPSULES
  9. CHOLECALCIFEROL [Concomitant]
     Active Substance: CHOLECALCIFEROL
     Dosage: STRENGTH: 100,000 IU, ORAL SOLUTION IN AMPOULE

REACTIONS (1)
  - Ischaemic stroke [Recovered/Resolved with Sequelae]

NARRATIVE: CASE EVENT DATE: 20250319
